FAERS Safety Report 24071659 (Version 1)
Quarter: 2024Q3

REPORT INFORMATION
  Report Type: Report from Study
  Country: DE (occurrence: DE)
  Receive Date: 20240710
  Receipt Date: 20240710
  Transmission Date: 20241017
  Serious: No
  Sender: ROCHE
  Company Number: DE-ROCHE-3272251

PATIENT
  Age: 42 Year
  Sex: Female
  Weight: 40.0 kg

DRUGS (3)
  1. EVRYSDI [Suspect]
     Active Substance: RISDIPLAM
     Indication: Spinal muscular atrophy
     Dosage: LAST DOSE: 16/JAN/2023, 20/OCT/2023, 23/JUN/2023, 21/FEB/2024
     Route: 048
     Dates: start: 20210809
  2. DIENOGEST [Concomitant]
     Active Substance: DIENOGEST
     Dates: start: 202209
  3. DIENOGEST [Concomitant]
     Active Substance: DIENOGEST
     Dates: start: 20220101

REACTIONS (10)
  - Constipation [Recovered/Resolved]
  - Headache [Recovered/Resolved]
  - Influenza [Recovered/Resolved]
  - Pyrexia [Recovered/Resolved]
  - Coronavirus test positive [Recovered/Resolved]
  - Pruritus [Recovered/Resolved]
  - Nausea [Recovered/Resolved]
  - Respiratory tract infection [Recovered/Resolved]
  - Diarrhoea [Recovered/Resolved]
  - Upper respiratory tract infection [Recovered/Resolved]

NARRATIVE: CASE EVENT DATE: 20220301
